FAERS Safety Report 8808393 (Version 2)
Quarter: 2012Q4

REPORT INFORMATION
  Report Type: Spontaneous
  Country: US (occurrence: None)
  Receive Date: 20120920
  Receipt Date: 20121023
  Transmission Date: 20130627
  Serious: Yes (Hospitalization)
  Sender: FDA-Public Use
  Company Number: HA12-269-AE

PATIENT
  Age: 19 Year
  Sex: Female
  Weight: 58.97 kg

DRUGS (1)
  1. SMZ / TMP [Suspect]
     Indication: INFECTION
     Dosage: 1 tablet, bid, oral
     Route: 048
     Dates: start: 20120808, end: 20120820

REACTIONS (10)
  - Psychotic disorder [None]
  - Mania [None]
  - Delirium [None]
  - Abnormal behaviour [None]
  - Dizziness [None]
  - Inappropriate affect [None]
  - Aggression [None]
  - Imprisonment [None]
  - Physical assault [None]
  - Mental disorder [None]
